FAERS Safety Report 18314165 (Version 2)
Quarter: 2020Q4

REPORT INFORMATION
  Report Type: Report from Study
  Country: US (occurrence: US)
  Receive Date: 20200925
  Receipt Date: 20201030
  Transmission Date: 20210113
  Serious: Yes (Other)
  Sender: FDA-Public Use
  Company Number: US-JNJFOC-A-NJ2016-135602

PATIENT
  Age: 62 Year
  Sex: Female
  Weight: 74.83 kg

DRUGS (4)
  1. OFEV [Suspect]
     Active Substance: NINTEDANIB
     Indication: PRODUCT USED FOR UNKNOWN INDICATION
     Route: 065
  2. OPSUMIT [Suspect]
     Active Substance: MACITENTAN
     Indication: PULMONARY ARTERIAL HYPERTENSION
     Dosage: 10 MG, QD
     Route: 048
     Dates: start: 20160419
  3. OPSUMIT [Suspect]
     Active Substance: MACITENTAN
     Route: 048
  4. OPSUMIT [Suspect]
     Active Substance: MACITENTAN
     Dosage: 10 MG, QD
     Route: 048
     Dates: start: 20180123

REACTIONS (22)
  - Pruritus [Unknown]
  - Sinusitis [Unknown]
  - Nausea [Unknown]
  - Diarrhoea [Unknown]
  - Pulmonary congestion [Unknown]
  - Cough [Recovered/Resolved]
  - Musculoskeletal chest pain [Unknown]
  - Sinus congestion [Unknown]
  - Abscess limb [Unknown]
  - Pulmonary fibrosis [Unknown]
  - Chronic obstructive pulmonary disease [Recovered/Resolved]
  - Herpes zoster [Unknown]
  - Wheezing [Recovered/Resolved]
  - Oedema [Not Recovered/Not Resolved]
  - Illness [Unknown]
  - Joint swelling [Unknown]
  - Gastrooesophageal reflux disease [Not Recovered/Not Resolved]
  - Influenza [Unknown]
  - Fatigue [Recovered/Resolved]
  - Dyspnoea [Recovered/Resolved]
  - Urinary tract infection [Unknown]
  - Rheumatoid arthritis [Unknown]

NARRATIVE: CASE EVENT DATE: 20160518
